FAERS Safety Report 8007732-7 (Version None)
Quarter: 2011Q4

REPORT INFORMATION
  Report Type: 
  Country: None (occurrence: None)
  Receive Date: 20111227
  Receipt Date: 20111202
  Transmission Date: 20120403
  Serious: No
  Sender: FDA-Public Use
  Company Number: US-ABBOTT-11P-163-0880661-00

PATIENT
  Sex: Male
  Weight: 87.168 kg

DRUGS (2)
  1. BENAZEPRIL HYDROCHLORIDE [Concomitant]
     Indication: HYPERTENSION
  2. LUPRON DEPOT [Suspect]
     Indication: PROSTATE CANCER
     Dates: start: 20110520

REACTIONS (9)
  - DYSPNOEA [None]
  - BACK PAIN [None]
  - HOT FLUSH [None]
  - CHILLS [None]
  - LUNG INFECTION [None]
  - SPINAL FRACTURE [None]
  - SERUM FERRITIN INCREASED [None]
  - PLEURITIC PAIN [None]
  - COUGH [None]
